FAERS Safety Report 4948157-8 (Version None)
Quarter: 2006Q1

REPORT INFORMATION
  Report Type: 
  Country: None (occurrence: None)
  Receive Date: 20060320
  Receipt Date: 20060308
  Transmission Date: 20060701
  Serious: Yes (Other)
  Sender: FDA-Public Use
  Company Number: US-BRISTOL-MYERS SQUIBB COMPANY-13319553

PATIENT
  Age: 55 Year
  Sex: Male

DRUGS (6)
  1. STAVUDINE [Suspect]
     Indication: HIV INFECTION
  2. NELFINAVIR [Suspect]
     Indication: HIV INFECTION
  3. LAMIVUDINE [Suspect]
     Indication: HIV INFECTION
  4. WARFARIN [Concomitant]
  5. PRAVASTATIN [Concomitant]
  6. ENALAPRIL MALEATE [Concomitant]

REACTIONS (1)
  - ELECTROCARDIOGRAM QT PROLONGED [None]
